FAERS Safety Report 9066804 (Version 3)
Quarter: 2013Q2

REPORT INFORMATION
  Report Type: Report from Study
  Country: JP (occurrence: JP)
  Receive Date: 20130214
  Receipt Date: 20130618
  Transmission Date: 20140414
  Serious: Yes (Other)
  Sender: FDA-Public Use
  Company Number: JP-GLAXOSMITHKLINE-B0862478A

PATIENT
  Age: 76 Year
  Sex: Male
  Weight: 48 kg

DRUGS (15)
  1. VOTRIENT [Suspect]
     Indication: LIPOSARCOMA
     Dosage: 800MG PER DAY
     Route: 048
     Dates: start: 20121203, end: 20121224
  2. VOTRIENT [Suspect]
     Indication: LIPOSARCOMA
     Dosage: 600MG PER DAY
     Route: 048
     Dates: start: 20121225, end: 20130103
  3. VOTRIENT [Suspect]
     Indication: LIPOSARCOMA
     Dosage: 400MG PER DAY
     Route: 048
     Dates: start: 20130104, end: 20130117
  4. VOTRIENT [Suspect]
     Indication: LIPOSARCOMA
     Dosage: 200MG PER DAY
     Route: 048
     Dates: start: 20130204
  5. LYRICA [Concomitant]
     Indication: PAIN
     Dosage: 25MG PER DAY
     Route: 048
     Dates: start: 20121004
  6. GOODMIN [Concomitant]
     Indication: INSOMNIA
     Dosage: .25MG PER DAY
     Route: 048
     Dates: start: 201109
  7. BIO-THREE [Concomitant]
     Dosage: 3IUAX THREE TIMES PER DAY
     Route: 048
     Dates: start: 201205
  8. MAGLAX [Concomitant]
     Indication: CONSTIPATION
     Dosage: 990MG THREE TIMES PER DAY
     Route: 048
     Dates: start: 201205
  9. RINPRAL [Concomitant]
     Indication: MUSCULOSKELETAL STIFFNESS
     Dosage: 150MG THREE TIMES PER DAY
     Route: 048
     Dates: start: 20121210
  10. GASTER D [Concomitant]
     Indication: GASTRITIS PROPHYLAXIS
     Dosage: 20MG PER DAY
     Route: 048
     Dates: start: 20120727
  11. THYRADIN S [Concomitant]
     Indication: HYPOTHYROIDISM
     Dosage: 50MCG PER DAY
     Route: 048
     Dates: start: 20121225, end: 20130222
  12. BLOPRESS [Concomitant]
     Indication: HYPERTENSION
     Dosage: 4MG PER DAY
     Route: 048
     Dates: start: 20121225
  13. OMEPRAZOLE [Concomitant]
     Indication: GASTRIC ULCER
     Route: 065
  14. FAMOTIDINE [Concomitant]
     Indication: GASTRIC ULCER
     Route: 065
  15. RANITIDINE [Concomitant]
     Indication: GASTRIC ULCER
     Route: 065

REACTIONS (6)
  - Platelet count decreased [Recovered/Resolved]
  - Hepatic function abnormal [Recovered/Resolved]
  - Aspartate aminotransferase increased [Recovered/Resolved]
  - Alanine aminotransferase increased [Recovered/Resolved]
  - Malaise [Recovering/Resolving]
  - Hypertension [Recovered/Resolved]
